FAERS Safety Report 26026063 (Version 1)
Quarter: 2025Q4

REPORT INFORMATION
  Report Type: Spontaneous
  Country: US (occurrence: None)
  Receive Date: 20251111
  Receipt Date: 20251111
  Transmission Date: 20260117
  Serious: Yes (Hospitalization)
  Sender: FDA-CTU
  Company Number: None

PATIENT
  Sex: Female

DRUGS (7)
  1. STELARA [Suspect]
     Active Substance: USTEKINUMAB
     Route: 058
     Dates: start: 20210504
  2. AZATHIOPRINE [Concomitant]
     Active Substance: AZATHIOPRINE
  3. DICYCLOMINE TAB 20MG [Concomitant]
  4. FLONASE  SPR 0.05% [Concomitant]
  5. PROTONIX TAB 40MG [Concomitant]
  6. VIIBRYD TAB 20MG [Concomitant]
  7. ZANTAC TAB 300MG [Concomitant]

REACTIONS (5)
  - Diarrhoea [None]
  - Abdominal pain [None]
  - Quality of life decreased [None]
  - Therapy interrupted [None]
  - Product contamination physical [None]
